FAERS Safety Report 15048544 (Version 1)
Quarter: 2018Q2

REPORT INFORMATION
  Report Type: Spontaneous
  Country: GB (occurrence: GB)
  Receive Date: 20180622
  Receipt Date: 20180622
  Transmission Date: 20180711
  Serious: Yes (Hospitalization)
  Sender: FDA-Public Use
  Company Number: GB-TEVA-2018-GB-911073

PATIENT
  Age: 88 Year
  Sex: Male
  Weight: 66 kg

DRUGS (10)
  1. CLOPIDOGREL [Concomitant]
     Active Substance: CLOPIDOGREL BISULFATE
  2. ZOPICLONE [Concomitant]
     Active Substance: ZOPICLONE
  3. SOLIFENACIN SUCCINATE. [Concomitant]
     Active Substance: SOLIFENACIN SUCCINATE
  4. DEXAMETHASONE SODIUM PHOSPHATE. [Concomitant]
     Active Substance: DEXAMETHASONE SODIUM PHOSPHATE
  5. OLIVE OIL [Concomitant]
     Active Substance: OLIVE OIL
  6. LATANOPROST. [Concomitant]
     Active Substance: LATANOPROST
  7. PARACETAMOL [Concomitant]
     Active Substance: ACETAMINOPHEN
  8. GLYCERYL TRINITRATE [Concomitant]
     Active Substance: NITROGLYCERIN
  9. PROMETHAZINE TEOCLATE [Suspect]
     Active Substance: PROMETHAZINE TEOCLATE
     Route: 048
     Dates: start: 20180423
  10. ATORVASTATIN [Concomitant]
     Active Substance: ATORVASTATIN

REACTIONS (4)
  - Slow response to stimuli [Recovering/Resolving]
  - Tachycardia [Recovering/Resolving]
  - Staring [Recovering/Resolving]
  - Overdose [Unknown]

NARRATIVE: CASE EVENT DATE: 20180423
